FAERS Safety Report 7319070-6 (Version None)
Quarter: 2011Q1

REPORT INFORMATION
  Report Type: 
  Country: None (occurrence: None)
  Receive Date: 20110228
  Receipt Date: 20110105
  Transmission Date: 20110831
  Serious: Yes (Death, Hospitalization)
  Sender: FDA-Public Use
  Company Number: CA-CELGENEUS-028-21880-11010227

PATIENT
  Sex: Male
  Weight: 90 kg

DRUGS (9)
  1. BISACODYL [Concomitant]
     Dosage: 10 MILLIGRAM
     Route: 065
  2. REVLIMID [Suspect]
     Indication: MULTIPLE MYELOMA
     Dosage: 25 MILLIGRAM
     Route: 048
     Dates: start: 20101208, end: 20101219
  3. TRANEXAMIC ACID [Concomitant]
     Indication: EPISTAXIS
     Dosage: 5 PERCENT
     Route: 061
  4. HALOPERIDOL [Concomitant]
     Indication: AGITATION
     Dosage: 25 MILLIGRAM
     Route: 048
  5. HYDROMORPHONE HCL [Concomitant]
     Indication: PAIN
     Dosage: .5 MILLIGRAM
     Route: 058
  6. ACETAMINOPHEN [Concomitant]
     Indication: PAIN
     Dosage: 650 MILLIGRAM
     Route: 065
  7. HALOPERIDOL [Concomitant]
     Indication: ANXIETY
     Dosage: 25 MILLIGRAM
     Route: 058
  8. OLANZAPINE [Concomitant]
     Indication: ANXIETY
     Dosage: 5 MILLIGRAM
     Route: 048
  9. DEXAMETHASONE [Suspect]
     Indication: MULTIPLE MYELOMA
     Dosage: 8 MILLIGRAM
     Route: 048
     Dates: start: 20101208, end: 20101219

REACTIONS (1)
  - MULTIPLE MYELOMA [None]
